FAERS Safety Report 7075449-1 (Version None)
Quarter: 2010Q4

REPORT INFORMATION
  Report Type: 
  Country: None (occurrence: None)
  Receive Date: 20101030
  Receipt Date: 20100907
  Transmission Date: 20110411
  Serious: Yes (Other)
  Sender: FDA-Public Use
  Company Number: US-WYE-H17403910

PATIENT
  Sex: Male

DRUGS (5)
  1. TYGACIL [Suspect]
     Indication: URINARY TRACT INFECTION
     Dosage: NOT PROVIDED
     Route: 042
  2. TYGACIL [Suspect]
     Indication: STAPHYLOCOCCAL INFECTION
  3. TYGACIL [Suspect]
     Indication: ESCHERICHIA INFECTION
  4. PREDNISONE [Suspect]
     Dosage: NOT PROVIDED
  5. CYCLOSPORINE [Suspect]
     Dosage: NOT PROVIDED

REACTIONS (1)
  - PANCREATITIS [None]
